FAERS Safety Report 5950379-4 (Version None)
Quarter: 2008Q4

REPORT INFORMATION
  Report Type: 
  Country: None (occurrence: None)
  Receive Date: 20081112
  Receipt Date: 20081106
  Transmission Date: 20090506
  Serious: Yes (Other)
  Sender: FDA-Public Use
  Company Number: PHEH2008US10020

PATIENT
  Sex: Male

DRUGS (2)
  1. TEGRETOL [Suspect]
  2. CYMBALTA [Suspect]

REACTIONS (1)
  - NEUROPATHY PERIPHERAL [None]
